FAERS Safety Report 12105570 (Version 1)
Quarter: 2016Q1

REPORT INFORMATION
  Report Type: Spontaneous
  Country: DE (occurrence: DE)
  Receive Date: 20160223
  Receipt Date: 20160223
  Transmission Date: 20160526
  Serious: Yes (Hospitalization)
  Sender: FDA-Public Use
  Company Number: DE-BAYER-2016-035406

PATIENT
  Age: 76 Year
  Sex: Male

DRUGS (2)
  1. HERZASS [Concomitant]
     Indication: HYPERTENSION
     Route: 048
  2. ASPIRIN. [Suspect]
     Active Substance: ASPIRIN
     Dosage: 300 MG, QD
     Route: 048

REACTIONS (5)
  - Vertigo positional [Recovered/Resolved]
  - Vertigo [Unknown]
  - Balance disorder [Recovered/Resolved]
  - Nausea [Unknown]
  - Vomiting [Unknown]

NARRATIVE: CASE EVENT DATE: 20150521
